APPROVED DRUG PRODUCT: TEKTURNA HCT
Active Ingredient: ALISKIREN HEMIFUMARATE; HYDROCHLOROTHIAZIDE
Strength: EQ 150MG BASE;12.5MG **Federal Register determination that product was not discontinued or withdrawn for safety or effectiveness reasons**
Dosage Form/Route: TABLET;ORAL
Application: N022107 | Product #001
Applicant: NODEN PHARMA DAC
Approved: Jan 18, 2008 | RLD: Yes | RS: No | Type: DISCN

PATENTS:
Patent 8618172 | Expires: Jul 13, 2028